FAERS Safety Report 19633791 (Version 1)
Quarter: 2021Q3

REPORT INFORMATION
  Report Type: Spontaneous
  Country: US (occurrence: US)
  Receive Date: 20210729
  Receipt Date: 20210729
  Transmission Date: 20211014
  Serious: No
  Sender: FDA-Public Use
  Company Number: None

PATIENT
  Sex: Female
  Weight: 55.35 kg

DRUGS (7)
  1. VITAMIN D [Concomitant]
     Active Substance: VITAMIN D NOS
  2. BENICAR [Concomitant]
     Active Substance: OLMESARTAN MEDOXOMIL
  3. PIQRAY [Suspect]
     Active Substance: ALPELISIB
     Indication: BREAST CANCER
     Route: 048
  4. FASLODEX [Concomitant]
     Active Substance: FULVESTRANT
  5. MULTIVITAMIN [Concomitant]
     Active Substance: VITAMINS
  6. TUMERIC [Concomitant]
     Active Substance: HERBALS\TURMERIC
  7. XGEVA [Concomitant]
     Active Substance: DENOSUMAB

REACTIONS (2)
  - Tremor [None]
  - Vomiting [None]
